FAERS Safety Report 10855186 (Version 1)
Quarter: 2015Q1

REPORT INFORMATION
  Report Type: Spontaneous
  Country: GB (occurrence: GB)
  Receive Date: 20150223
  Receipt Date: 20150223
  Transmission Date: 20150721
  Serious: Yes (Other)
  Sender: FDA-Public Use
  Company Number: GB-TEVA-540096ISR

PATIENT
  Age: 20 Year
  Sex: Female
  Weight: 107.2 kg

DRUGS (15)
  1. MEBEVERINE HYDROCHLORIDE [Concomitant]
     Active Substance: MEBEVERINE HYDROCHLORIDE
     Dates: start: 20141209, end: 20150106
  2. FEXOFENADINE [Concomitant]
     Active Substance: FEXOFENADINE\FEXOFENADINE HYDROCHLORIDE
     Dates: start: 20141003, end: 20150108
  3. DESOGESTREL [Concomitant]
     Active Substance: DESOGESTREL
     Dates: start: 20140604, end: 20141119
  4. ZELLETA [Concomitant]
     Dates: start: 20141104
  5. QVAR [Concomitant]
     Active Substance: BECLOMETHASONE DIPROPIONATE
     Dates: start: 20140903
  6. ALUMINIUM CHLORIDE HEXAHYDRATE [Concomitant]
     Dates: start: 20141209, end: 20150108
  7. AMITRIPTYLINE HYDROCHLORIDE. [Concomitant]
     Active Substance: AMITRIPTYLINE HYDROCHLORIDE
     Dates: start: 20141003, end: 20150106
  8. COCODAMOL [Concomitant]
     Active Substance: ACETAMINOPHEN\CODEINE PHOSPHATE
     Dates: start: 20150108, end: 20150120
  9. AZITHROMYCIN [Suspect]
     Active Substance: AZITHROMYCIN ANHYDROUS
     Route: 065
     Dates: start: 20150121
  10. CITALOPRAM [Concomitant]
     Active Substance: CITALOPRAM HYDROBROMIDE
     Dates: start: 20141003, end: 20150106
  11. LANSOPRAZOLE. [Concomitant]
     Active Substance: LANSOPRAZOLE
     Dates: start: 20141003, end: 20150106
  12. PROPANTHELINE BROMIDE. [Concomitant]
     Active Substance: PROPANTHELINE BROMIDE
     Dates: start: 20141003, end: 20141102
  13. DOXYCYCLINE. [Concomitant]
     Active Substance: DOXYCYCLINE
     Dates: start: 20150112, end: 20150117
  14. MEBEVERINE HYDROCHLORIDE [Concomitant]
     Active Substance: MEBEVERINE HYDROCHLORIDE
     Dates: start: 20141003, end: 20141031
  15. SALBUTAMOL [Concomitant]
     Active Substance: ALBUTEROL
     Dates: start: 20141209, end: 20150106

REACTIONS (2)
  - Reaction to drug excipients [Recovered/Resolved]
  - Swelling face [Recovered/Resolved]

NARRATIVE: CASE EVENT DATE: 20150122
